FAERS Safety Report 13251604 (Version 12)
Quarter: 2018Q2

REPORT INFORMATION
  Report Type: Report from Study
  Country: GB (occurrence: GB)
  Receive Date: 20170220
  Receipt Date: 20180626
  Transmission Date: 20180711
  Serious: Yes (Other)
  Sender: FDA-Public Use
  Company Number: GB-BRISTOL-MYERS SQUIBB COMPANY-BMS-2017-001113

PATIENT
  Sex: Female

DRUGS (1)
  1. ABATACEPT [Suspect]
     Active Substance: ABATACEPT
     Indication: RHEUMATOID ARTHRITIS
     Dosage: 125 MG, QWK
     Route: 058
     Dates: start: 20150724

REACTIONS (6)
  - Lower respiratory tract infection [Unknown]
  - Arthropathy [Unknown]
  - Rash [Unknown]
  - Urinary tract infection [Unknown]
  - Skin irritation [Unknown]
  - Chest pain [Unknown]
